FAERS Safety Report 6640559-7 (Version None)
Quarter: 2010Q1

REPORT INFORMATION
  Report Type: 
  Country: None (occurrence: None)
  Receive Date: 20100318
  Receipt Date: 20100308
  Transmission Date: 20100710
  Serious: Yes (Hospitalization)
  Sender: FDA-Public Use
  Company Number: ES-ELI_LILLY_AND_COMPANY-ES201003001848

PATIENT
  Sex: Male

DRUGS (5)
  1. GEMCITABINE HCL [Suspect]
     Indication: NON-SMALL CELL LUNG CANCER
     Dosage: 2237.5 MG, UNK
     Route: 042
     Dates: start: 20091216, end: 20100225
  2. CISPLATIN [Suspect]
     Indication: NON-SMALL CELL LUNG CANCER
     Dosage: 134.2 MG, UNK
     Route: 042
     Dates: start: 20091216, end: 20100225
  3. FLUMIL                             /00082801/ [Concomitant]
  4. PANTOPRAZOL [Concomitant]
  5. VENTOLIN [Concomitant]

REACTIONS (1)
  - LOBAR PNEUMONIA [None]
